FAERS Safety Report 8083233 (Version 2)
Quarter: 2013Q2

REPORT INFORMATION
  Report Type: Spontaneous
  Country: GB (occurrence: GB)
  Receive Date: 20110810
  Receipt Date: 20130627
  Transmission Date: 20140414
  Serious: Yes (Other)
  Sender: FDA-Public Use
  Company Number: GB-PFIZER INC-2011179433

PATIENT
  Age: 76 Year
  Sex: Female

DRUGS (4)
  1. AMLODIPINE BESILATE [Suspect]
     Dosage: UNK
     Route: 065
  2. SALBUTAMOL SULFATE [Suspect]
     Indication: ASTHMA
     Dosage: 1 DF, AS NEEDED
     Route: 065
  3. SERETIDE [Suspect]
     Indication: ASTHMA
     Dosage: UNK
     Route: 055
  4. SERETIDE [Suspect]
     Dosage: 1000, UNK
     Route: 065

REACTIONS (2)
  - Drug ineffective [Unknown]
  - Asthma [Unknown]
